FAERS Safety Report 5170449-0 (Version None)
Quarter: 2006Q4

REPORT INFORMATION
  Report Type: 
  Country: None (occurrence: None)
  Receive Date: 20061212
  Receipt Date: 20061206
  Transmission Date: 20070319
  Serious: Yes (Other)
  Sender: FDA-Public Use
  Company Number: US-ROXANE LABORATORIES, INC-2006-BP-14172RO

PATIENT
  Age: 60 Year
  Sex: Female

DRUGS (3)
  1. CYCLOPHOSPHAMIDE [Suspect]
     Indication: CHEMOTHERAPY
     Dosage: 600 MG/M2 Q3 WEEKS X 4 CYCLES
     Route: 042
     Dates: start: 19950101
  2. TAMOXIFEN CITRATE [Suspect]
     Indication: CHEMOTHERAPY
     Dates: start: 19960101, end: 20010501
  3. DOXORUBICIN HCL [Suspect]
     Indication: CHEMOTHERAPY
     Dosage: 60 MG/M2 Q3 WEEKS X 4 CYCLES
     Dates: start: 19950101

REACTIONS (3)
  - SQUAMOUS CELL CARCINOMA [None]
  - TONGUE CARCINOMA STAGE I [None]
  - TONGUE NEOPLASM MALIGNANT STAGE UNSPECIFIED [None]
